FAERS Safety Report 5922253-0 (Version None)
Quarter: 2008Q4

REPORT INFORMATION
  Report Type: 
  Country: None (occurrence: None)
  Receive Date: 20081017
  Receipt Date: 20081010
  Transmission Date: 20090506
  Serious: Yes (Other)
  Sender: FDA-Public Use
  Company Number: US-AVENTIS-200814254US

PATIENT
  Sex: Female
  Weight: 81.6 kg

DRUGS (3)
  1. APIDRA [Suspect]
     Indication: DIABETES MELLITUS
     Dosage: DOSE: 50-75U VIA PUMP
     Dates: start: 20070901
  2. DRUG USED IN DIABETES [Concomitant]
     Indication: DIABETES MELLITUS
     Dosage: FREQUENCY: BEFORE MEALS
     Dates: start: 20070901
  3. IRON INFUSION [Concomitant]
     Indication: IRON DEFICIENCY ANAEMIA
     Dosage: DOSE: UNK
     Route: 042

REACTIONS (3)
  - HYPERGLYCAEMIA [None]
  - MEMORY IMPAIRMENT [None]
  - PRODUCT QUALITY ISSUE [None]
